FAERS Safety Report 4362210-1 (Version None)
Quarter: 2004Q2

REPORT INFORMATION
  Report Type: 
  Country: None (occurrence: None)
  Receive Date: 20040517
  Receipt Date: 20040506
  Transmission Date: 20050107
  Serious: Yes (Hospitalization)
  Sender: FDA-Public Use
  Company Number: US-AMGEN-US074063

PATIENT
  Sex: Female
  Weight: 101 kg

DRUGS (9)
  1. KINERET [Suspect]
     Indication: RHEUMATOID ARTHRITIS
     Dosage: 100 MG, 1 IN 1 DAYS, SC
     Route: 058
     Dates: start: 20020101, end: 20040410
  2. METHOTREXATE [Concomitant]
  3. LOSARTAN POTASSIUM [Concomitant]
  4. ESTRADIOL [Concomitant]
  5. LANSOPRAZOLE [Concomitant]
  6. CALCIUM CITRATE [Concomitant]
  7. SULTOPRIDE [Concomitant]
  8. HYDROCODONE BITARTRATE/IBUPROFEN [Concomitant]
  9. HYDROCHLOROTHIAZIDE [Concomitant]

REACTIONS (1)
  - PANCREATITIS [None]
